FAERS Safety Report 10667502 (Version 1)
Quarter: 2014Q4

REPORT INFORMATION
  Report Type: Spontaneous
  Country: ES (occurrence: ES)
  Receive Date: 20141222
  Receipt Date: 20141222
  Transmission Date: 20150529
  Serious: Yes (Other)
  Sender: FDA-Public Use
  Company Number: ES-PFIZER INC-2014347018

PATIENT
  Age: 38 Year
  Sex: Male

DRUGS (2)
  1. PIPERACILLIN/TAZOBACTAM [Suspect]
     Active Substance: PIPERACILLIN SODIUM\TAZOBACTAM SODIUM
     Indication: CHOLANGITIS
     Dosage: UNK
  2. SUNITINIB [Concomitant]
     Active Substance: SUNITINIB
     Indication: VON HIPPEL-LINDAU DISEASE
     Dosage: UNK

REACTIONS (9)
  - Pyrexia [None]
  - Swelling face [None]
  - Leukopenia [None]
  - Drug reaction with eosinophilia and systemic symptoms [Unknown]
  - Pruritus [None]
  - Blood creatinine increased [None]
  - Lymphadenopathy [None]
  - Transaminases increased [None]
  - Jaundice [None]
